FAERS Safety Report 15312466 (Version 9)
Quarter: 2025Q1

REPORT INFORMATION
  Report Type: Spontaneous
  Country: US (occurrence: US)
  Receive Date: 20180823
  Receipt Date: 20250204
  Transmission Date: 20250409
  Serious: No
  Sender: SANOFI AVENTIS
  Company Number: US-SA-2018SA230114

PATIENT
  Age: 68 Year
  Sex: Male

DRUGS (1)
  1. DUPIXENT [Suspect]
     Active Substance: DUPILUMAB
     Indication: Dermatitis atopic
     Dosage: 300 MG, QOW
     Route: 058
     Dates: start: 201712

REACTIONS (5)
  - Rash [Not Recovered/Not Resolved]
  - Dermatitis atopic [Recovered/Resolved]
  - Pruritus [Recovered/Resolved]
  - Dermatitis atopic [Recovered/Resolved]
  - Dermatitis atopic [Unknown]

NARRATIVE: CASE EVENT DATE: 20191212
